FAERS Safety Report 23766130 (Version 1)
Quarter: 2024Q2

REPORT INFORMATION
  Report Type: Report from Study
  Country: US (occurrence: US)
  Receive Date: 20240421
  Receipt Date: 20240421
  Transmission Date: 20240715
  Serious: Yes (Death, Hospitalization)
  Sender: FDA-Public Use
  Company Number: US-ABBVIE-5725706

PATIENT
  Sex: Female
  Weight: 61.234 kg

DRUGS (3)
  1. RESTASIS [Suspect]
     Active Substance: CYCLOSPORINE
     Indication: Dry eye
     Dosage: FORM STRENGTH: 0.5 MILLIGRAM/MILLILITERS
     Route: 047
     Dates: start: 2009, end: 20240329
  2. MORPHINE [Concomitant]
     Active Substance: MORPHINE
     Indication: Product used for unknown indication
  3. ENTRESTO [Concomitant]
     Active Substance: SACUBITRIL\VALSARTAN
     Indication: Product used for unknown indication

REACTIONS (4)
  - Cardiac failure congestive [Fatal]
  - Coeliac disease [Recovered/Resolved]
  - Cardiac valve disease [Fatal]
  - Hospitalisation [Unknown]

NARRATIVE: CASE EVENT DATE: 20100101
